FAERS Safety Report 11398337 (Version 1)
Quarter: 2015Q3

REPORT INFORMATION
  Report Type: Spontaneous
  Country: BR (occurrence: BR)
  Receive Date: 20150820
  Receipt Date: 20150820
  Transmission Date: 20151125
  Serious: Yes (Hospitalization)
  Sender: FDA-Public Use
  Company Number: BR-ASTRAZENECA-2015SE78452

PATIENT
  Age: 69 Year
  Sex: Female
  Weight: 80 kg

DRUGS (8)
  1. ATORVASTATIN [Concomitant]
     Active Substance: ATORVASTATIN
     Indication: ACUTE MYOCARDIAL INFARCTION
     Route: 048
     Dates: start: 2009
  2. PANTOPRAZOLE [Concomitant]
     Active Substance: PANTOPRAZOLE SODIUM
     Dosage: 40 MG
     Route: 048
     Dates: start: 2009
  3. ARTROLIVE [Concomitant]
     Active Substance: CHONDROITIN SULFATE (BOVINE)\GLUCOSAMINE SULFATE
     Indication: OSTEOARTHRITIS
     Dosage: THREE TIMES A DAY
     Route: 048
  4. BENERVA [Concomitant]
     Active Substance: THIAMINE
     Route: 048
     Dates: start: 2009
  5. ASPIRINA PREVENT [Concomitant]
     Active Substance: ASPIRIN
     Indication: ACUTE MYOCARDIAL INFARCTION
     Dosage: TWO TIMES A DAY
     Route: 048
     Dates: start: 2009
  6. MOTILIUM [Concomitant]
     Active Substance: DOMPERIDONE
     Route: 048
     Dates: start: 2009
  7. SELOZOK [Suspect]
     Active Substance: METOPROLOL SUCCINATE
     Indication: ACUTE MYOCARDIAL INFARCTION
     Route: 048
     Dates: start: 2009
  8. LOSARTAN. [Concomitant]
     Active Substance: LOSARTAN
     Indication: ACUTE MYOCARDIAL INFARCTION
     Route: 048
     Dates: start: 2009

REACTIONS (2)
  - Aortic occlusion [Recovered/Resolved]
  - Off label use [Not Recovered/Not Resolved]

NARRATIVE: CASE EVENT DATE: 2009
